FAERS Safety Report 24213478 (Version 3)
Quarter: 2024Q3

REPORT INFORMATION
  Report Type: Spontaneous
  Country: US (occurrence: US)
  Receive Date: 20240815
  Receipt Date: 20240927
  Transmission Date: 20241017
  Serious: No
  Sender: VIVUS
  Company Number: US-PPDUS-2023V1001148

PATIENT
  Age: 60 Year
  Sex: Female

DRUGS (3)
  1. QSYMIA [Suspect]
     Active Substance: PHENTERMINE HYDROCHLORIDE\TOPIRAMATE
     Indication: Product used for unknown indication
     Route: 048
  2. GABAPENTIN [Concomitant]
     Active Substance: GABAPENTIN
     Indication: Product used for unknown indication
     Route: 065
  3. KLONOPIN [Concomitant]
     Active Substance: CLONAZEPAM
     Indication: Product used for unknown indication
     Route: 065

REACTIONS (9)
  - Oropharyngeal discomfort [Unknown]
  - Fall [Not Recovered/Not Resolved]
  - Gait disturbance [Recovering/Resolving]
  - Syncope [Unknown]
  - Asthenia [Unknown]
  - Spousal abuse [Unknown]
  - Neuropathy peripheral [Recovering/Resolving]
  - Stress [Unknown]
  - Depressed mood [Unknown]
